FAERS Safety Report 6899576-4 (Version None)
Quarter: 2010Q3

REPORT INFORMATION
  Report Type: 
  Country: None (occurrence: None)
  Receive Date: 20100729
  Receipt Date: 20100716
  Transmission Date: 20110219
  Serious: Yes (Hospitalization)
  Sender: FDA-Public Use
  Company Number: A-NJ2010-38209

PATIENT
  Age: 51 Year
  Sex: Female

DRUGS (3)
  1. TRACLEER [Suspect]
     Indication: PULMONARY ARTERIAL HYPERTENSION
     Dosage: ORAL
     Route: 048
     Dates: start: 20090602
  2. CALCIUM CHANNEL BLOCKERS [Concomitant]
  3. WARFARIN SODIUM [Concomitant]

REACTIONS (2)
  - HEADACHE [None]
  - VISUAL IMPAIRMENT [None]
